FAERS Safety Report 20509328 (Version 1)
Quarter: 2022Q1

REPORT INFORMATION
  Report Type: Spontaneous
  Country: US (occurrence: US)
  Receive Date: 20220223
  Receipt Date: 20220223
  Transmission Date: 20220423
  Serious: Yes (Hospitalization, Other)
  Sender: FDA-Public Use
  Company Number: US-SUN PHARMACEUTICAL INDUSTRIES LTD-2022R1-326788

PATIENT
  Age: 58 Year
  Sex: Female

DRUGS (1)
  1. DEXAMETHASONE [Suspect]
     Active Substance: DEXAMETHASONE
     Indication: Immunosuppression
     Dosage: UNK
     Route: 065

REACTIONS (6)
  - Aspergilloma [Unknown]
  - Endocarditis [Unknown]
  - Mitral valve incompetence [Unknown]
  - Cerebral haemorrhage [Unknown]
  - Cerebral artery occlusion [Unknown]
  - Peripheral artery occlusion [Unknown]
